FAERS Safety Report 10219601 (Version 1)
Quarter: 2014Q2

REPORT INFORMATION
  Report Type: Spontaneous
  Country: FR (occurrence: FR)
  Receive Date: 20140605
  Receipt Date: 20140605
  Transmission Date: 20141212
  Serious: Yes (Other)
  Sender: FDA-Public Use
  Company Number: FR-GLAXOSMITHKLINE-B0998613A

PATIENT
  Age: 75 Year
  Sex: Male
  Weight: 75 kg

DRUGS (2)
  1. ACITRETIN [Suspect]
     Indication: DERMATOSIS
     Dosage: 20MG PER DAY
     Route: 048
     Dates: end: 20140510
  2. LYRICA [Suspect]
     Indication: PAIN
     Route: 048
     Dates: start: 20140429, end: 20140510

REACTIONS (5)
  - Stevens-Johnson syndrome [Unknown]
  - Dermatitis bullous [Unknown]
  - Hypersensitivity [Unknown]
  - Swelling face [Unknown]
  - Superinfection [Not Recovered/Not Resolved]
